FAERS Safety Report 25879330 (Version 1)
Quarter: 2025Q4

REPORT INFORMATION
  Report Type: Spontaneous
  Country: US (occurrence: US)
  Receive Date: 20251003
  Receipt Date: 20251003
  Transmission Date: 20260118
  Serious: Yes (Hospitalization)
  Sender: PTC THERAPEUTICS
  Company Number: US-PTC THERAPEUTICS INC.-US-2025PTC000789

PATIENT
  Age: 15 Year
  Sex: Male

DRUGS (2)
  1. KEBILIDI [Suspect]
     Active Substance: ELADOCAGENE EXUPARVOVEC
     Indication: Aromatic L-amino acid decarboxylase deficiency
     Dosage: 1.8 X 10^11 VG (0.32 ML), ONE TIME DOSE
     Dates: start: 20250718, end: 20250718
  2. TRANYLCYPROMINE [Concomitant]
     Active Substance: TRANYLCYPROMINE
     Indication: Product used for unknown indication

REACTIONS (4)
  - Procedural headache [Recovered/Resolved]
  - Pyrexia [Unknown]
  - Subdural haematoma [Unknown]
  - Inflammatory marker increased [Unknown]

NARRATIVE: CASE EVENT DATE: 20250701
